FAERS Safety Report 17536074 (Version 2)
Quarter: 2020Q1

REPORT INFORMATION
  Report Type: Spontaneous
  Country: US (occurrence: US)
  Receive Date: 20200313
  Receipt Date: 20200327
  Transmission Date: 20200409
  Serious: Yes (Hospitalization, Other)
  Sender: FDA-Public Use
  Company Number: US-PRINSTON PHARMACEUTICAL INC.-2020PRN00076

PATIENT
  Age: 77 Year
  Sex: Male

DRUGS (1)
  1. BENAZEPRIL HYDROCHLORIDE. [Suspect]
     Active Substance: BENAZEPRIL HYDROCHLORIDE
     Indication: HYPERTENSION
     Dosage: UNK
     Dates: start: 2019, end: 20200122

REACTIONS (9)
  - Overdose [Unknown]
  - Acute kidney injury [Unknown]
  - Product substitution issue [Recovered/Resolved]
  - Feeling abnormal [Unknown]
  - Renal impairment [Not Recovered/Not Resolved]
  - Adverse drug reaction [Unknown]
  - Weight decreased [Recovered/Resolved]
  - Oedema peripheral [Unknown]
  - Hyperkalaemia [Recovered/Resolved]

NARRATIVE: CASE EVENT DATE: 2019
